FAERS Safety Report 18233873 (Version 1)
Quarter: 2020Q3

REPORT INFORMATION
  Report Type: Spontaneous
  Country: US (occurrence: US)
  Receive Date: 20200904
  Receipt Date: 20200904
  Transmission Date: 20201103
  Serious: Yes (Death)
  Sender: FDA-Public Use
  Company Number: US-PURDUE-USA-2020-0164074

PATIENT
  Age: 50 Year
  Sex: Female

DRUGS (15)
  1. PERCOCET                           /00446701/ [Suspect]
     Active Substance: ACETAMINOPHEN\OXYCODONE HYDROCHLORIDE\OXYCODONE TEREPHTHALATE
     Indication: CHEST PAIN
     Route: 065
  2. AMBIEN [Suspect]
     Active Substance: ZOLPIDEM TARTRATE
     Indication: CHEST PAIN
     Route: 065
  3. NITRO                              /00003201/ [Suspect]
     Active Substance: NITROGLYCERIN
     Indication: CHEST PAIN
     Route: 065
  4. EVISTA [Suspect]
     Active Substance: RALOXIFENE HYDROCHLORIDE
     Indication: CHEST PAIN
     Route: 065
  5. OXYCONTIN [Suspect]
     Active Substance: OXYCODONE HYDROCHLORIDE
     Indication: CHEST PAIN
     Route: 048
  6. EFFEXOR XR [Suspect]
     Active Substance: VENLAFAXINE HYDROCHLORIDE
     Indication: CHEST PAIN
     Route: 065
  7. DULERA [Suspect]
     Active Substance: FORMOTEROL FUMARATE DIHYDRATE\MOMETASONE FUROATE
     Indication: CHEST PAIN
     Route: 065
  8. REMERON [Suspect]
     Active Substance: MIRTAZAPINE
     Indication: CHEST PAIN
     Route: 065
  9. KLONOPIN [Suspect]
     Active Substance: CLONAZEPAM
     Indication: CHEST PAIN
     Route: 065
  10. COUMADIN [Suspect]
     Active Substance: WARFARIN SODIUM
     Indication: CHEST PAIN
     Route: 065
  11. WARFARIN [Suspect]
     Active Substance: WARFARIN
     Indication: CHEST PAIN
     Route: 065
  12. LAMICTAL [Suspect]
     Active Substance: LAMOTRIGINE
     Indication: CHEST PAIN
     Route: 065
  13. ADVICOR [Suspect]
     Active Substance: LOVASTATIN\NIACIN
     Indication: CHEST PAIN
     Route: 065
  14. ISOSORBIDE MONONITRATE. [Suspect]
     Active Substance: ISOSORBIDE MONONITRATE
     Indication: CHEST PAIN
     Route: 065
  15. TOPREL [Suspect]
     Active Substance: TOPIRAMATE
     Indication: CHEST PAIN
     Route: 065

REACTIONS (1)
  - Death [Fatal]

NARRATIVE: CASE EVENT DATE: 2012
